FAERS Safety Report 4794967-X (Version None)
Quarter: 2005Q4

REPORT INFORMATION
  Report Type: 
  Country: None (occurrence: None)
  Receive Date: 20051006
  Receipt Date: 20050919
  Transmission Date: 20060501
  Serious: Yes (Hospitalization)
  Sender: FDA-Public Use
  Company Number: DSA_27215_2005

PATIENT
  Age: 16 Year
  Sex: Female

DRUGS (2)
  1. DICLOFENAC [Suspect]
     Indication: ANALGESIC EFFECT
     Dosage: 75 MG BID PO
     Route: 048
  2. CLINDAMYCIN [Concomitant]

REACTIONS (7)
  - ABDOMINAL PAIN [None]
  - ANAEMIA [None]
  - LARGE INTESTINE PERFORATION [None]
  - LEUKOCYTOSIS [None]
  - PERITONITIS [None]
  - PROTHROMBIN TIME PROLONGED [None]
  - PYREXIA [None]
